FAERS Safety Report 4645949-X (Version None)
Quarter: 2005Q2

REPORT INFORMATION
  Report Type: 
  Country: None (occurrence: None)
  Receive Date: 20050422
  Receipt Date: 20050422
  Transmission Date: 20051028
  Serious: Yes (Other)
  Sender: FDA-Public Use
  Company Number: None

PATIENT
  Sex: Female
  Weight: 130.1823 kg

DRUGS (2)
  1. TRAMADOL - WATSON [Suspect]
     Indication: BACK PAIN
     Dosage: 50 MG
     Dates: start: 20040801, end: 20040901
  2. TRAMADOL - WATSON [Suspect]
     Indication: BACK PAIN
     Dosage: 50 MG
     Dates: start: 20050101, end: 20050401

REACTIONS (3)
  - HEADACHE [None]
  - RASH [None]
  - THERAPEUTIC RESPONSE UNEXPECTED WITH DRUG SUBSTITUTION [None]
